FAERS Safety Report 12671477 (Version 3)
Quarter: 2016Q3

REPORT INFORMATION
  Report Type: Spontaneous
  Country: JP (occurrence: JP)
  Receive Date: 20160822
  Receipt Date: 20160920
  Transmission Date: 20161109
  Serious: Yes (Hospitalization, Other)
  Sender: FDA-Public Use
  Company Number: JP-ASTELLAS-2016JP013785AA

PATIENT
  Age: 51 Year
  Sex: Female

DRUGS (2)
  1. PROTOPIC [Suspect]
     Active Substance: TACROLIMUS
     Indication: LICHEN PLANUS
     Dosage: UNK UNK, UNKNOWN FREQ.
     Route: 061
  2. PREDNISOLONE. [Concomitant]
     Active Substance: PREDNISOLONE
     Indication: LICHEN PLANUS
     Route: 048

REACTIONS (2)
  - Off label use [Unknown]
  - Squamous cell carcinoma of skin [Recovering/Resolving]
